FAERS Safety Report 9513095 (Version 1)
Quarter: 2013Q3

REPORT INFORMATION
  Report Type: Spontaneous
  Country: US (occurrence: US)
  Receive Date: 20130910
  Receipt Date: 20130910
  Transmission Date: 20140515
  Serious: No
  Sender: FDA-Public Use
  Company Number: US-BAXTER-2013BAX035185

PATIENT
  Age: 13 Year
  Sex: Female

DRUGS (6)
  1. FEIBA NF [Suspect]
     Indication: ACQUIRED HAEMOPHILIA
     Dosage: 85 IU OF FIX ACTIVITY PER KG
  2. FEIBA NF [Suspect]
     Indication: FACTOR VIII INHIBITION
  3. DOPAMINE [Concomitant]
     Indication: HYPOTENSION
  4. FACTOR VIIA, RECOMBINANT [Concomitant]
     Indication: ACQUIRED HAEMOPHILIA
  5. FACTOR VIIA, RECOMBINANT [Concomitant]
     Route: 042
  6. PREDNISONE [Concomitant]
     Indication: FACTOR VIII INHIBITION

REACTIONS (1)
  - Hypersensitivity [Recovered/Resolved]
